FAERS Safety Report 6426796-5 (Version None)
Quarter: 2009Q4

REPORT INFORMATION
  Report Type: 
  Country: None (occurrence: None)
  Receive Date: 20091104
  Receipt Date: 20091028
  Transmission Date: 20100525
  Serious: Yes (Disabling)
  Sender: FDA-Public Use
  Company Number: US-ASTRAZENECA-2009SE23107

PATIENT
  Sex: Male
  Weight: 92.5 kg

DRUGS (9)
  1. ZOLADEX [Suspect]
     Indication: PROSTATE CANCER
     Route: 058
     Dates: start: 20030101, end: 20060101
  2. SIMVASTATIN [Concomitant]
     Route: 065
  3. TERAZOSIN HCL [Concomitant]
     Route: 065
  4. LISINOPRIL [Concomitant]
     Route: 065
  5. METFORMIN [Concomitant]
     Route: 065
  6. LEVOTHYROXINE SODIUM [Concomitant]
     Route: 065
  7. CITRACAL [Concomitant]
     Route: 065
  8. VITAMIN D [Concomitant]
     Route: 065
  9. MAGNESIUM [Concomitant]
     Route: 065

REACTIONS (6)
  - DIABETES MELLITUS INADEQUATE CONTROL [None]
  - FALL [None]
  - LUMBAR VERTEBRAL FRACTURE [None]
  - MUSCULAR WEAKNESS [None]
  - OSTEOPOROSIS [None]
  - WEIGHT INCREASED [None]
